FAERS Safety Report 10218879 (Version 2)
Quarter: 2014Q3

REPORT INFORMATION
  Report Type: Report from Study
  Country: CN (occurrence: None)
  Receive Date: 20140603
  Receipt Date: 20140826
  Transmission Date: 20150326
  Serious: Yes (Hospitalization)
  Sender: FDA-Public Use
  Company Number: 7294943

PATIENT
  Age: 70 Year
  Sex: Male

DRUGS (2)
  1. NIFEDIPINE (NIFEDIPINE) (NIFEDIPINE) [Concomitant]
     Active Substance: NIFEDIPINE
  2. EUTHYROXINE SODIUM (50 MICROGRAM, TABLET) (LEVOTHYROXINE SODIUM) ,171303 [Suspect]
     Active Substance: LEVOTHYROXINE SODIUM
     Indication: THYROIDECTOMY
     Dosage: 1 DF (1 DF, 1 IN 1 D)?
     Route: 048
     Dates: start: 2009

REACTIONS (4)
  - Tri-iodothyronine decreased [None]
  - Thyroxine decreased [None]
  - Blood thyroid stimulating hormone increased [None]
  - Supraventricular extrasystoles [None]

NARRATIVE: CASE EVENT DATE: 201312
